FAERS Safety Report 12635852 (Version 18)
Quarter: 2019Q1

REPORT INFORMATION
  Report Type: Spontaneous
  Country: US (occurrence: US)
  Receive Date: 20160809
  Receipt Date: 20190107
  Transmission Date: 20190417
  Serious: Yes (Hospitalization)
  Sender: FDA-Public Use
  Company Number: US-ACTELION-A-US2015-124934

PATIENT
  Age: 45 Year
  Sex: Female
  Weight: 72.56 kg

DRUGS (10)
  1. TRACLEER [Suspect]
     Active Substance: BOSENTAN
     Indication: PULMONARY ARTERIAL HYPERTENSION
     Dosage: 125 MG, BID
     Route: 048
     Dates: start: 20110810
  2. ORENITRAM [Suspect]
     Active Substance: TREPROSTINIL
     Dosage: 3 MG, UNK
     Route: 065
     Dates: end: 20180715
  3. SILDENAFIL CITRATE. [Concomitant]
     Active Substance: SILDENAFIL CITRATE
  4. COUMADIN [Concomitant]
     Active Substance: WARFARIN SODIUM
  5. TRACLEER [Suspect]
     Active Substance: BOSENTAN
     Dosage: 125 MG, BID
     Route: 048
     Dates: start: 20110810
  6. ORENITRAM [Suspect]
     Active Substance: TREPROSTINIL
     Dosage: 4 MG, UNK
     Route: 065
  7. ADCIRCA [Concomitant]
     Active Substance: TADALAFIL
  8. REMODULIN [Suspect]
     Active Substance: TREPROSTINIL
     Indication: PRODUCT USED FOR UNKNOWN INDICATION
     Dosage: 5 NG/KG, PER MIN
     Route: 058
  9. ORENITRAM [Suspect]
     Active Substance: TREPROSTINIL
     Indication: PRODUCT USED FOR UNKNOWN INDICATION
     Dosage: 2 MG, TID
     Route: 065
  10. ELIQUIS [Concomitant]
     Active Substance: APIXABAN

REACTIONS (31)
  - Catheter site erythema [Unknown]
  - Catheter management [Unknown]
  - Central venous catheter removal [Unknown]
  - International normalised ratio increased [Unknown]
  - Device related infection [Unknown]
  - Vomiting [Unknown]
  - Dizziness [Unknown]
  - Nephrolithiasis [Unknown]
  - Pain in jaw [Unknown]
  - Weight increased [Unknown]
  - Headache [Unknown]
  - Catheter site rash [Unknown]
  - Retching [Unknown]
  - Diarrhoea [Unknown]
  - Fatigue [Unknown]
  - Asthenia [Unknown]
  - Dyspnoea [Recovering/Resolving]
  - Malaise [Unknown]
  - Temporomandibular joint syndrome [Unknown]
  - Decreased appetite [Unknown]
  - Infusion site pain [Unknown]
  - Catheter site infection [Unknown]
  - Gastroenteritis viral [Unknown]
  - Nausea [Unknown]
  - Chest pain [Unknown]
  - Catheter site pruritus [Unknown]
  - Catheter site inflammation [Unknown]
  - Flushing [Unknown]
  - Dyspnoea exertional [Unknown]
  - Catheter site swelling [Unknown]
  - Palpitations [Unknown]

NARRATIVE: CASE EVENT DATE: 20170424
